FAERS Safety Report 8238815-4 (Version None)
Quarter: 2012Q1

REPORT INFORMATION
  Report Type: 
  Country: None (occurrence: None)
  Receive Date: 20120327
  Receipt Date: 20120319
  Transmission Date: 20120608
  Serious: Yes (Hospitalization, Other)
  Sender: FDA-Public Use
  Company Number: CHPA2012US005076

PATIENT
  Age: 61 Year
  Sex: Male

DRUGS (3)
  1. PREVACID 24 HR [Suspect]
     Dosage: 15MG A DAY
     Route: 048
  2. PREVACID 24 HR [Suspect]
     Dosage: 15MG BID
     Route: 048
     Dates: start: 20120201, end: 20120201
  3. PREVACID 24 HR [Suspect]
     Indication: DYSPEPSIA
     Dosage: 30MG IN THE A.M., 30MG IN THE P.M.
     Route: 048
     Dates: end: 20120201

REACTIONS (12)
  - HAEMOPTYSIS [None]
  - DISEASE RECURRENCE [None]
  - WRONG TECHNIQUE IN DRUG USAGE PROCESS [None]
  - OESOPHAGEAL IRRITATION [None]
  - DIABETES MELLITUS [None]
  - REGURGITATION [None]
  - APHAGIA [None]
  - THERAPEUTIC RESPONSE UNEXPECTED [None]
  - RENAL IMPAIRMENT [None]
  - OVERDOSE [None]
  - INCORRECT DRUG ADMINISTRATION DURATION [None]
  - OFF LABEL USE [None]
